FAERS Safety Report 5203964-1 (Version None)
Quarter: 2007Q1

REPORT INFORMATION
  Report Type: 
  Country: None (occurrence: None)
  Receive Date: 20070105
  Receipt Date: 20070105
  Transmission Date: 20070707
  Serious: Yes (Life-Threatening, Hospitalization)
  Sender: FDA-Public Use
  Company Number: None

PATIENT
  Age: 7 Year
  Sex: Male
  Weight: 22.7 kg

DRUGS (3)
  1. CEFTRIAXONE [Suspect]
     Indication: UPPER RESPIRATORY TRACT INFECTION
     Dosage: 250 MG  X1  IM
     Route: 030
     Dates: start: 20070101
  2. RITALIN [Concomitant]
  3. OTC COLD MEDICINES [Concomitant]

REACTIONS (3)
  - CARDIAC ARREST [None]
  - GRAND MAL CONVULSION [None]
  - RESPIRATORY FAILURE [None]
